FAERS Safety Report 21493117 (Version 1)
Quarter: 2022Q4

REPORT INFORMATION
  Report Type: Spontaneous
  Country: US (occurrence: US)
  Receive Date: 20221021
  Receipt Date: 20221021
  Transmission Date: 20230113
  Serious: No
  Sender: FDA-Public Use
  Company Number: US-BRISTOL-MYERS SQUIBB COMPANY-2022-124793

PATIENT
  Age: 63 Year
  Sex: Female

DRUGS (1)
  1. MAVACAMTEN [Suspect]
     Active Substance: MAVACAMTEN
     Indication: Hypertrophic cardiomyopathy
     Dosage: DOSE : 2.5 MG;     FREQ : ^ONCE A DAY^.
     Route: 065
     Dates: start: 202207, end: 20221013

REACTIONS (2)
  - Hypertension [Unknown]
  - Chest pain [Unknown]
